FAERS Safety Report 9052313 (Version 2)
Quarter: 2013Q2

REPORT INFORMATION
  Report Type: Spontaneous
  Country: JP (occurrence: JP)
  Receive Date: 20130206
  Receipt Date: 20130530
  Transmission Date: 20140414
  Serious: Yes (Other)
  Sender: FDA-Public Use
  Company Number: JP-PFIZER INC-2013048936

PATIENT
  Age: 81 Year
  Sex: Male

DRUGS (2)
  1. ESTRACYT [Suspect]
     Indication: PROSTATE CANCER
     Dosage: 313 MG, 1X/DAY
     Route: 048
     Dates: start: 20120720, end: 20120730
  2. FLOMOX [Concomitant]
     Dosage: UNK
     Dates: start: 20120413, end: 20120904

REACTIONS (1)
  - Retinal haemorrhage [Recovered/Resolved with Sequelae]
